FAERS Safety Report 18571640 (Version 2)
Quarter: 2021Q2

REPORT INFORMATION
  Report Type: Report from Study
  Country: US (occurrence: US)
  Receive Date: 20201202
  Receipt Date: 20210525
  Transmission Date: 20210717
  Serious: Yes (Life-Threatening, Hospitalization)
  Sender: FDA-Public Use
  Company Number: US-TAKEDA-US202028748

PATIENT
  Sex: Female

DRUGS (15)
  1. ZOFRAN [Concomitant]
     Active Substance: ONDANSETRON HYDROCHLORIDE
     Indication: NAUSEA
     Dosage: UNK
     Route: 048
     Dates: start: 20180301
  2. GLEEVEC [Concomitant]
     Active Substance: IMATINIB MESYLATE
     Indication: NEOPLASM MALIGNANT
     Dosage: UNK
     Route: 065
     Dates: start: 20120619
  3. OXYCODONE [Concomitant]
     Active Substance: OXYCODONE
     Indication: PAIN
     Dosage: UNK
     Route: 048
     Dates: start: 20180227, end: 20180228
  4. LEXAPRO [Concomitant]
     Active Substance: ESCITALOPRAM OXALATE
     Indication: DEPRESSION
     Dosage: UNK
     Route: 065
     Dates: start: 20130911
  5. PROCTOFOAM HC [Concomitant]
     Active Substance: HYDROCORTISONE ACETATE\PRAMOXINE HYDROCHLORIDE
     Indication: PRODUCT USED FOR UNKNOWN INDICATION
     Dosage: UNK
     Route: 054
     Dates: start: 20160510
  6. PARATHYROID HORMONE [Suspect]
     Active Substance: PARATHYROID HORMONE
     Indication: HYPOPARATHYROIDISM
     Route: 065
  7. LEVOTHYROXINE. [Concomitant]
     Active Substance: LEVOTHYROXINE
     Indication: NEOPLASM MALIGNANT
     Dosage: UNK
     Route: 065
     Dates: start: 20020701
  8. PARATHYROID HORMONE [Suspect]
     Active Substance: PARATHYROID HORMONE
     Indication: HYPOPARATHYROIDISM
     Route: 065
  9. PARATHYROID HORMONE [Suspect]
     Active Substance: PARATHYROID HORMONE
     Indication: HYPOPARATHYROIDISM
     Route: 065
  10. PEPCID [Concomitant]
     Active Substance: FAMOTIDINE
     Indication: GASTROOESOPHAGEAL REFLUX DISEASE
     Dosage: UNK
     Route: 065
     Dates: start: 20130725
  11. FLUDROCORTISONE [Concomitant]
     Active Substance: FLUDROCORTISONE
     Indication: HYPONATRAEMIA
     Dosage: UNK
     Route: 048
     Dates: start: 2009
  12. HYDROMORPHONE [Concomitant]
     Active Substance: HYDROMORPHONE
     Indication: PAIN
     Dosage: UNK
     Route: 042
     Dates: start: 20180227, end: 20180228
  13. NALOXONE [Concomitant]
     Active Substance: NALOXONE
     Indication: PAIN
     Dosage: UNK
     Route: 042
     Dates: start: 20180227, end: 20180227
  14. FENTANYL. [Concomitant]
     Active Substance: FENTANYL
     Indication: PAIN
     Dosage: UNK
     Route: 042
     Dates: start: 20180227, end: 20180227
  15. KLOR?CON [Concomitant]
     Active Substance: POTASSIUM CHLORIDE
     Indication: SHORT-BOWEL SYNDROME
     Dosage: UNK
     Route: 065
     Dates: start: 20020701

REACTIONS (2)
  - Adenomatous polyposis coli [Recovered/Resolved]
  - Procedural pain [Recovered/Resolved]

NARRATIVE: CASE EVENT DATE: 20180227
